FAERS Safety Report 7222595-5 (Version None)
Quarter: 2011Q1

REPORT INFORMATION
  Report Type: 
  Country: None (occurrence: None)
  Receive Date: 20110103
  Receipt Date: 20101221
  Transmission Date: 20110831
  Serious: Yes (Death)
  Sender: FDA-Public Use
  Company Number: FKO201000598

PATIENT
  Age: 55 Year
  Sex: Male

DRUGS (13)
  1. VINCRISTINE [Concomitant]
  2. IFOSFAMIDE [Concomitant]
  3. CYCLOPHOSPHAMIDE [Concomitant]
  4. PREDNISOLONE [Concomitant]
  5. CARBOPLATIN [Concomitant]
  6. GEMCITABINE [Concomitant]
  7. DOXORUBICIN [Concomitant]
  8. IRINOTECAN (MANUFACTURER UNKNOWN) (IRINOTECAN) [Suspect]
     Dosage: 30 MG/M2 (30 MG/M2, 1 IN 1 D);
  9. METHOTREXATE [Concomitant]
  10. CYTARABINE [Concomitant]
  11. DISPLATIN [Concomitant]
  12. DEXAMETHASONE [Concomitant]
  13. ETOPOSIDE [Concomitant]

REACTIONS (6)
  - RENAL FAILURE ACUTE [None]
  - POLLAKIURIA [None]
  - PYREXIA [None]
  - HAEMODIALYSIS [None]
  - ANURIA [None]
  - BK VIRUS INFECTION [None]
